FAERS Safety Report 7412226-3 (Version None)
Quarter: 2011Q2

REPORT INFORMATION
  Report Type: 
  Country: None (occurrence: None)
  Receive Date: 20110413
  Receipt Date: 20110401
  Transmission Date: 20111010
  Serious: Yes (Hospitalization)
  Sender: FDA-Public Use
  Company Number: JP-ROCHE-754401

PATIENT
  Sex: Female

DRUGS (2)
  1. XELODA [Suspect]
     Indication: BREAST CANCER
     Dosage: DOSAGE WAS UNCERTAIN
     Route: 048
     Dates: end: 20100101
  2. HERCEPTIN [Suspect]
     Indication: BREAST CANCER
     Dosage: DOSAGE WAS UNCERTAIN.
     Route: 041
     Dates: end: 20100101

REACTIONS (2)
  - B-CELL LYMPHOMA [None]
  - MESENTERIC PANNICULITIS [None]
